FAERS Safety Report 21153262 (Version 1)
Quarter: 2022Q3

REPORT INFORMATION
  Report Type: Spontaneous
  Country: DK (occurrence: DK)
  Receive Date: 20220731
  Receipt Date: 20220731
  Transmission Date: 20221027
  Serious: Yes (Life-Threatening)
  Sender: FDA-Public Use
  Company Number: None

PATIENT
  Age: 45 Year
  Sex: Female
  Weight: 75 kg

DRUGS (2)
  1. ENBREL [Suspect]
     Active Substance: ETANERCEPT
     Indication: Rheumatoid arthritis
     Dosage: 50 MILLIGRAM, WEEKLY
     Route: 058
     Dates: start: 20140301, end: 20210308
  2. METHOTREXATE SODIUM [Suspect]
     Active Substance: METHOTREXATE SODIUM
     Indication: Rheumatoid arthritis
     Dosage: 20 MG, WEEKLY
     Route: 058
     Dates: start: 20201125, end: 20210308

REACTIONS (1)
  - Pneumocystis jirovecii pneumonia [Not Recovered/Not Resolved]

NARRATIVE: CASE EVENT DATE: 20210308
